FAERS Safety Report 6202526-7 (Version None)
Quarter: 2009Q2

REPORT INFORMATION
  Report Type: 
  Country: None (occurrence: None)
  Receive Date: 20090526
  Receipt Date: 20090520
  Transmission Date: 20091009
  Serious: Yes (Disabling, Other)
  Sender: FDA-Public Use
  Company Number: US-ALLERGAN-0905823US

PATIENT
  Age: 84 Year
  Sex: Male
  Weight: 84.807 kg

DRUGS (2)
  1. COMBIGAN [Suspect]
     Indication: GLAUCOMA
     Dosage: 1 GTT, BID
     Route: 047
     Dates: start: 20090303, end: 20090427
  2. COMBIGAN [Suspect]
     Indication: INTRAOCULAR PRESSURE TEST

REACTIONS (2)
  - ASTHMA [None]
  - MALAISE [None]
